FAERS Safety Report 14308509 (Version 1)
Quarter: 2017Q4

REPORT INFORMATION
  Report Type: Spontaneous
  Country: TR (occurrence: TR)
  Receive Date: 20171220
  Receipt Date: 20171220
  Transmission Date: 20180321
  Serious: Yes (Other)
  Sender: FDA-Public Use
  Company Number: TR-APOTEX-2017AP022632

PATIENT
  Age: 13 Year
  Sex: Female

DRUGS (3)
  1. ALENDRONATE 70 [Suspect]
     Active Substance: ALENDRONATE SODIUM
     Indication: OSTEOPOROSIS
     Dosage: 35 MG, Q.WK.
     Route: 065
  2. CALCIUM [Suspect]
     Active Substance: CALCIUM
     Indication: OSTEOPOROSIS
     Dosage: 2000 MG, PER DAY
     Route: 065
  3. VITAMIN D                          /00107901/ [Suspect]
     Active Substance: ERGOCALCIFEROL
     Indication: OSTEOPOROSIS
     Dosage: 400 IU, PER DAY
     Route: 065

REACTIONS (2)
  - Drug ineffective [Unknown]
  - Pathological fracture [Unknown]
